FAERS Safety Report 16370233 (Version 4)
Quarter: 2020Q4

REPORT INFORMATION
  Report Type: Report from Study
  Country: PL (occurrence: PL)
  Receive Date: 20190530
  Receipt Date: 20201126
  Transmission Date: 20210113
  Serious: Yes (Other)
  Sender: FDA-Public Use
  Company Number: PL-ROCHE-2322491

PATIENT
  Age: 55 Year
  Sex: Female

DRUGS (8)
  1. TARDYFERON [Concomitant]
     Active Substance: FERROUS SULFATE
     Dates: start: 20130718
  2. DUAC [Concomitant]
     Active Substance: BENZOYL PEROXIDE\CLINDAMYCIN PHOSPHATE
     Indication: DERMATITIS ACNEIFORM
     Dates: start: 20160610
  3. TRASTUZUMAB EMTANSINE [Suspect]
     Active Substance: ADO-TRASTUZUMAB EMTANSINE
     Indication: BREAST CANCER
     Dosage: ON 24/APR/2019 SHE HAD MOST RECENT DOSE OF  TRASTUZUMAB EMTANSINE 183 MG PRIOR TO AE AS PER THE CLIN
     Route: 042
     Dates: start: 20160530
  4. HEPAREGEN [Concomitant]
     Indication: HYPERBILIRUBINAEMIA
     Dates: start: 20170515
  5. KALDYUM [Concomitant]
     Active Substance: POTASSIUM CHLORIDE
  6. ASPARGIN [Concomitant]
     Active Substance: ASPARTIC ACID
  7. PERTUZUMAB. [Suspect]
     Active Substance: PERTUZUMAB
     Indication: BREAST CANCER
     Dosage: ON 24/APR/2019, SHE RECEIVED MOST RECENT DOSE OF PERTUZUMAB, 420 MG PRIOR TO AE ONSET
     Route: 042
     Dates: start: 20160530
  8. EMOFIX [Concomitant]
     Indication: EPISTAXIS
     Dates: start: 20140911

REACTIONS (1)
  - Myelodysplastic syndrome [Not Recovered/Not Resolved]

NARRATIVE: CASE EVENT DATE: 20190505
